FAERS Safety Report 21331604 (Version 4)
Quarter: 2023Q4

REPORT INFORMATION
  Report Type: Report from Study
  Country: BR (occurrence: BR)
  Receive Date: 20220914
  Receipt Date: 20231212
  Transmission Date: 20240110
  Serious: Yes (Hospitalization, Disabling, Other)
  Sender: FDA-Public Use
  Company Number: BR-CELLTRION INC.-2022BR014712

PATIENT

DRUGS (12)
  1. INFLIXIMAB [Suspect]
     Active Substance: INFLIXIMAB
     Indication: Rheumatoid arthritis
     Dosage: UNK
     Route: 042
     Dates: start: 20220714
  2. INFLIXIMAB [Suspect]
     Active Substance: INFLIXIMAB
     Dosage: 2 AMPOULES EVERY 2 MONTHS
     Route: 042
     Dates: start: 20220715
  3. INFLIXIMAB [Suspect]
     Active Substance: INFLIXIMAB
     Dosage: UNK
     Dates: start: 20231206
  4. METHOTREXATE [Concomitant]
     Active Substance: METHOTREXATE
     Indication: Arthritis
     Dosage: 25MH/ML, ONCE A WEEK, INJETABLE
  5. PREDNISONE [Concomitant]
     Active Substance: PREDNISONE
     Indication: Arthritis
     Dosage: 5 MG, 1 PILL PER DAY
     Route: 048
  6. AMLODIPINE [Concomitant]
     Active Substance: AMLODIPINE BESYLATE
     Indication: Hypertension
     Dosage: 5 MG, 1 PILL PER DAY STARTED 20 YEARS AGO
     Route: 048
  7. LOSARTAN [Concomitant]
     Active Substance: LOSARTAN
     Indication: Hypertension
     Dosage: 50 MG, 1 PILL PER DAY STARTED 20 YEARS AGO
     Route: 048
  8. FUROSEMIDE [Concomitant]
     Active Substance: FUROSEMIDE
     Indication: Hypertension
     Dosage: 5 MG, 1 PILL PER DAY STARTED 20 YEARS AGO
     Route: 048
  9. PANTOPRAZOLE [Concomitant]
     Active Substance: PANTOPRAZOLE
     Indication: Ulcer
     Dosage: 40 MG, 1 PILL PER DAY STARTED 20 YEARS AGO
     Route: 048
  10. FOLIC ACID [Concomitant]
     Active Substance: FOLIC ACID
     Indication: Rheumatoid arthritis
     Dosage: 1 PILL A DAY STARTED 20 YEARS AGO
     Route: 048
  11. CLONAZEPAM [Concomitant]
     Active Substance: CLONAZEPAM
     Indication: Anxiety
     Dosage: 1 PILL A DAY STARTED 20 YEARS AGO
     Route: 048
  12. AMITRIPTYLINE [Concomitant]
     Active Substance: AMITRIPTYLINE
     Indication: Anxiety
     Dosage: 1 PILL A DAY STARTED 20 YEARS AGO
     Route: 048

REACTIONS (18)
  - Hip fracture [Recovering/Resolving]
  - Fall [Recovering/Resolving]
  - Pelvic fracture [Recovering/Resolving]
  - Upper limb fracture [Recovering/Resolving]
  - Limb injury [Recovering/Resolving]
  - Foot deformity [Unknown]
  - Hand deformity [Unknown]
  - Asthenia [Unknown]
  - Arthralgia [Unknown]
  - Bronchitis [Not Recovered/Not Resolved]
  - Contusion [Unknown]
  - Dizziness [Unknown]
  - Pain [Recovering/Resolving]
  - Pain [Not Recovered/Not Resolved]
  - Pruritus [Unknown]
  - Product availability issue [Unknown]
  - Therapy interrupted [Unknown]
  - Intentional dose omission [Not Recovered/Not Resolved]

NARRATIVE: CASE EVENT DATE: 20220715
